FAERS Safety Report 9250584 (Version 1)
Quarter: 2013Q1

REPORT INFORMATION
  Report Type: Spontaneous
  Country: US (occurrence: None)
  Receive Date: 20130305
  Receipt Date: 20130305
  Transmission Date: 20140127
  Serious: Yes (Disabling, Other)
  Sender: FDA-Public Use
  Company Number: 163-21880-12040500

PATIENT
  Age: 88 Year
  Sex: Female

DRUGS (2)
  1. REVLIMID (LENALIDOMIDE) [Suspect]
     Indication: PLASMA CELL MYELOMA
     Route: 048
     Dates: start: 20120120, end: 20120521
  2. DECADRON (DEXAMETHASONE) UNKNOWN [Concomitant]

REACTIONS (5)
  - Pancytopenia [None]
  - Neuropathy peripheral [None]
  - Fatigue [None]
  - Bone pain [None]
  - Wound infection staphylococcal [None]
